FAERS Safety Report 25646874 (Version 2)
Quarter: 2025Q3

REPORT INFORMATION
  Report Type: Spontaneous
  Country: JP (occurrence: JP)
  Receive Date: 20250805
  Receipt Date: 20250827
  Transmission Date: 20251020
  Serious: Yes (Other)
  Sender: ALEXION PHARMACEUTICALS
  Company Number: JP-AstraZeneca-CH-00921163A

PATIENT
  Age: 79 Year
  Sex: Male

DRUGS (4)
  1. IMFINZI [Suspect]
     Active Substance: DURVALUMAB
     Indication: Non-small cell lung cancer
     Dosage: 1500 MILLIGRAM, Q3W
     Dates: start: 20250708
  2. IMJUDO [Suspect]
     Active Substance: TREMELIMUMAB\TREMELIMUMAB-ACTL
     Indication: Non-small cell lung cancer
     Dosage: 75 MILLIGRAM, Q3W
     Dates: start: 20250708
  3. CARBOPLATIN [Concomitant]
     Active Substance: CARBOPLATIN
     Route: 065
  4. ALIMTA [Concomitant]
     Active Substance: PEMETREXED DISODIUM
     Route: 065

REACTIONS (5)
  - Infusion related reaction [Recovered/Resolved]
  - Metastases to central nervous system [Unknown]
  - Metastases to bone [Unknown]
  - Loss of consciousness [Recovered/Resolved]
  - Orthostatic hypotension [Unknown]

NARRATIVE: CASE EVENT DATE: 20250729
